FAERS Safety Report 7449639-X (Version None)
Quarter: 2011Q1

REPORT INFORMATION
  Report Type: 
  Country: None (occurrence: None)
  Receive Date: 20110302
  Receipt Date: 20101112
  Transmission Date: 20110831
  Serious: No
  Sender: FDA-Public Use
  Company Number: 022006

PATIENT
  Sex: Female
  Weight: 66.9 kg

DRUGS (7)
  1. SUMYCIN [Concomitant]
  2. IMODIUM [Concomitant]
  3. CIMZIA [Suspect]
     Indication: CROHN'S DISEASE
     Dosage: 400 MG 1X/2 WEEKS SUBCUTANEOUS, 400 MG 1X/MONTH SUBCUTANEOUS
     Route: 058
     Dates: start: 20100801, end: 20100101
  4. CIMZIA [Suspect]
     Indication: CROHN'S DISEASE
     Dosage: 400 MG 1X/2 WEEKS SUBCUTANEOUS, 400 MG 1X/MONTH SUBCUTANEOUS
     Route: 058
     Dates: start: 20100101, end: 20101111
  5. PENTASA [Concomitant]
  6. ZANTAC [Concomitant]
  7. PRILOSEC [Concomitant]

REACTIONS (11)
  - DYSARTHRIA [None]
  - RETCHING [None]
  - MALAISE [None]
  - DIZZINESS [None]
  - INFLUENZA [None]
  - SINUS CONGESTION [None]
  - FEELING ABNORMAL [None]
  - VISION BLURRED [None]
  - BALANCE DISORDER [None]
  - FATIGUE [None]
  - NAUSEA [None]
